FAERS Safety Report 24323398 (Version 2)
Quarter: 2024Q4

REPORT INFORMATION
  Report Type: Spontaneous
  Country: US (occurrence: US)
  Receive Date: 20240916
  Receipt Date: 20241025
  Transmission Date: 20250115
  Serious: No
  Sender: ALEXION PHARMACEUTICALS
  Company Number: 2024A206795

PATIENT
  Age: 88 Year

DRUGS (2)
  1. FARXIGA [Suspect]
     Active Substance: DAPAGLIFLOZIN PROPANEDIOL
     Dosage: UNK
  2. FARXIGA [Suspect]
     Active Substance: DAPAGLIFLOZIN PROPANEDIOL
     Dosage: UNK

REACTIONS (4)
  - Exfoliative rash [Unknown]
  - Feeling abnormal [Unknown]
  - Pruritus [Unknown]
  - Product dose omission issue [Unknown]
